FAERS Safety Report 14559606 (Version 2)
Quarter: 2018Q1

REPORT INFORMATION
  Report Type: Report from Study
  Country: FR (occurrence: FR)
  Receive Date: 20180221
  Receipt Date: 20180228
  Transmission Date: 20180509
  Serious: Yes (Hospitalization, Other)
  Sender: FDA-Public Use
  Company Number: FR-SHIRE-FR201806613

PATIENT

DRUGS (10)
  1. CYCLOPHOSPHAMIDE. [Suspect]
     Active Substance: CYCLOPHOSPHAMIDE
     Indication: ACUTE LYMPHOCYTIC LEUKAEMIA
     Dosage: 720 MG, 1X/DAY:QD
     Route: 042
     Dates: start: 20180128, end: 20180128
  2. 6-MERCAPTOPURINE MONOHYDRATE [Suspect]
     Active Substance: MERCAPTOPURINE
     Indication: ACUTE LYMPHOCYTIC LEUKAEMIA
     Dosage: 42 MG, 1X/DAY:QD
     Route: 048
     Dates: start: 20180128, end: 20180210
  3. PEGASPARGASE [Suspect]
     Active Substance: PEGASPARGASE
     Indication: ACUTE LYMPHOCYTIC LEUKAEMIA
     Dosage: 1650 IU, 1X/DAY:QD
     Route: 042
     Dates: start: 20180211, end: 20180211
  4. METHYLPREDNISOLONE. [Suspect]
     Active Substance: METHYLPREDNISOLONE
     Indication: ACUTE LYMPHOCYTIC LEUKAEMIA
     Dosage: 12.4 MG, 1X/DAY:QD
     Route: 037
     Dates: start: 20180130, end: 20180130
  5. ZOPHREN                            /00955301/ [Concomitant]
     Active Substance: ONDANSETRON
     Indication: ACUTE LYMPHOCYTIC LEUKAEMIA
  6. CYTARABINE. [Suspect]
     Active Substance: CYTARABINE
     Indication: ACUTE LYMPHOCYTIC LEUKAEMIA
     Dosage: 52.5 MG, 1X/DAY:QD
     Route: 042
     Dates: start: 20180130, end: 20180209
  7. VINCRISTINE [Suspect]
     Active Substance: VINCRISTINE
     Indication: ACUTE LYMPHOCYTIC LEUKAEMIA
     Dosage: 1 MG, 1X/DAY:QD
     Route: 042
     Dates: start: 20180211, end: 20180211
  8. METHOTREXATE. [Suspect]
     Active Substance: METHOTREXATE
     Indication: ACUTE LYMPHOCYTIC LEUKAEMIA
     Dosage: 10 MG, 1X/DAY:QD
     Route: 037
     Dates: start: 20180130, end: 20180130
  9. CYTARABINE. [Suspect]
     Active Substance: CYTARABINE
     Dosage: 25 MG, 1X/DAY:QD
     Route: 037
     Dates: start: 20180130, end: 20180130
  10. ZOPHREN                            /00955301/ [Concomitant]
     Active Substance: ONDANSETRON
     Indication: ANTIEMETIC SUPPORTIVE CARE

REACTIONS (1)
  - Febrile bone marrow aplasia [Not Recovered/Not Resolved]

NARRATIVE: CASE EVENT DATE: 20180214
